FAERS Safety Report 9150213 (Version 1)
Quarter: 2013Q1

REPORT INFORMATION
  Report Type: Spontaneous
  Country: US (occurrence: None)
  Receive Date: 20130228
  Receipt Date: 20130228
  Transmission Date: 20140127
  Serious: Yes (Life-Threatening)
  Sender: FDA-Public Use
  Company Number: None

PATIENT
  Age: 56 Year
  Sex: Male
  Weight: 78.1 kg

DRUGS (2)
  1. INFLIXIMAB [Suspect]
     Dosage: 400 MG OTHER FREQUENCY IV ROUTE
     Route: 042
     Dates: start: 20090721, end: 20121203
  2. AZATHIOPRINE [Suspect]
     Route: 048
     Dates: start: 20071203, end: 20130214

REACTIONS (2)
  - Hodgkin^s disease [None]
  - Treatment failure [None]
